FAERS Safety Report 17912419 (Version 1)
Quarter: 2020Q2

REPORT INFORMATION
  Report Type: Spontaneous
  Country: US (occurrence: US)
  Receive Date: 20200618
  Receipt Date: 20200618
  Transmission Date: 20200714
  Serious: No
  Sender: FDA-Public Use
  Company Number: US-SA-2020SA156489

PATIENT

DRUGS (2)
  1. DUPIXENT [Suspect]
     Active Substance: DUPILUMAB
  2. ACYCLOVIR [ACICLOVIR] [Concomitant]
     Active Substance: ACYCLOVIR
     Indication: HERPES SIMPLEX
     Dosage: UNK UNK, QD

REACTIONS (11)
  - Vital dye staining cornea present [Unknown]
  - Ocular hyperaemia [Unknown]
  - Lacrimation increased [Unknown]
  - Blepharitis [Unknown]
  - Corneal disorder [Unknown]
  - Dry eye [Unknown]
  - Eyelid margin crusting [Unknown]
  - Eye pain [Unknown]
  - Photophobia [Unknown]
  - Conjunctivitis [Unknown]
  - Eye irritation [Unknown]
